FAERS Safety Report 6729638-3 (Version None)
Quarter: 2010Q2

REPORT INFORMATION
  Report Type: 
  Country: None (occurrence: None)
  Receive Date: 20100512
  Receipt Date: 20100427
  Transmission Date: 20101027
  Serious: Yes (Other)
  Sender: FDA-Public Use
  Company Number: AUR-APL-2010-01194

PATIENT
  Sex: Male

DRUGS (12)
  1. ATENOLOL [Suspect]
  2. HYDROCHLOROTHIAZIDE [Suspect]
  3. LORAZEPAM [Suspect]
  4. CELEXA [Suspect]
  5. FOLIC ACID [Suspect]
  6. COLACE [Suspect]
  7. VITAMINS [Suspect]
  8. OMEGA-3 SUPPLEMENT [Suspect]
  9. LORTAB [Suspect]
  10. ZYRTEC [Suspect]
  11. NIASPAN W/ASPIRIN [Suspect]
  12. PEPCID [Suspect]
     Dosage: PRN

REACTIONS (1)
  - ARTHRITIS [None]
